FAERS Safety Report 11008034 (Version 1)
Quarter: 2015Q2

REPORT INFORMATION
  Report Type: Spontaneous
  Country: US (occurrence: US)
  Receive Date: 20150410
  Receipt Date: 20150410
  Transmission Date: 20150821
  Serious: No
  Sender: FDA-Public Use
  Company Number: US-009507513-1503USA006381

PATIENT
  Age: 22 Year
  Sex: Female
  Weight: 58.96 kg

DRUGS (1)
  1. NUVARING [Suspect]
     Active Substance: ETHINYL ESTRADIOL\ETONOGESTREL
     Indication: CONTRACEPTION
     Dosage: STRENGTH 0.015/0.12(UNIT NOT PROVIDED) 1 RING/3 WEEKS PER MONTH
     Route: 067
     Dates: start: 201409

REACTIONS (2)
  - Gonorrhoea [Not Recovered/Not Resolved]
  - Chlamydial infection [Not Recovered/Not Resolved]
